FAERS Safety Report 6444062-9 (Version None)
Quarter: 2009Q4

REPORT INFORMATION
  Report Type: 
  Country: None (occurrence: None)
  Receive Date: 20091118
  Receipt Date: 20091110
  Transmission Date: 20100525
  Serious: Yes (Hospitalization, Other)
  Sender: FDA-Public Use
  Company Number: US-BIOGENIDEC-2009BI036461

PATIENT
  Age: 35 Year
  Sex: Female
  Weight: 63 kg

DRUGS (7)
  1. TYSABRI [Suspect]
     Indication: CROHN'S DISEASE
     Route: 042
     Dates: start: 20081118
  2. PREVACID [Concomitant]
     Indication: GASTROOESOPHAGEAL REFLUX DISEASE
     Route: 048
     Dates: start: 20060801
  3. METHADONE HCL [Concomitant]
     Indication: ABDOMINAL PAIN
     Route: 048
     Dates: start: 20081001
  4. TRAZODONE HCL [Concomitant]
     Indication: DEPRESSION
     Route: 048
     Dates: start: 20090101
  5. BACLOFEN [Concomitant]
     Indication: MUSCLE SPASMS
     Route: 048
     Dates: start: 20090101
  6. HYDROCODONE [Concomitant]
     Indication: BREAKTHROUGH PAIN
     Route: 048
     Dates: start: 20091001
  7. APAP TAB [Concomitant]
     Indication: BREAKTHROUGH PAIN
     Route: 048
     Dates: start: 20091001

REACTIONS (1)
  - OVARIAN CYST TORSION [None]
